FAERS Safety Report 12807647 (Version 2)
Quarter: 2017Q1

REPORT INFORMATION
  Report Type: Report from Study
  Country: LB (occurrence: LB)
  Receive Date: 20161004
  Receipt Date: 20170207
  Transmission Date: 20170428
  Serious: No
  Sender: FDA-Public Use
  Company Number: PHHY2015LB135484

PATIENT
  Age: 65 Year
  Sex: Female

DRUGS (1)
  1. TASIGNA [Suspect]
     Active Substance: NILOTINIB
     Indication: CHRONIC MYELOID LEUKAEMIA
     Dosage: 600 MG, QD
     Route: 048
     Dates: start: 201506

REACTIONS (14)
  - Back pain [Recovering/Resolving]
  - Dyslipidaemia [Not Recovered/Not Resolved]
  - Weight increased [Not Recovered/Not Resolved]
  - Incorrect drug administration duration [Not Recovered/Not Resolved]
  - Tooth infection [Recovered/Resolved]
  - Insomnia [Unknown]
  - Ocular hyperaemia [Unknown]
  - Pain in extremity [Recovering/Resolving]
  - Influenza [Recovered/Resolved]
  - Fatigue [Unknown]
  - Eye allergy [Recovered/Resolved]
  - Pain [Recovered/Resolved]
  - Abasia [Unknown]
  - Bone disorder [Unknown]

NARRATIVE: CASE EVENT DATE: 201701
